FAERS Safety Report 6535391-9 (Version None)
Quarter: 2010Q1

REPORT INFORMATION
  Report Type: 
  Country: None (occurrence: None)
  Receive Date: 20100113
  Receipt Date: 20100105
  Transmission Date: 20100710
  Serious: Yes (Other)
  Sender: FDA-Public Use
  Company Number: US-ASTRAZENECA-2009SE21262

PATIENT
  Age: 21 Year
  Sex: Male
  Weight: 117.9 kg

DRUGS (3)
  1. SEROQUEL [Suspect]
     Route: 048
  2. LAMICTAL [Concomitant]
     Route: 065
  3. DEPAKOTE [Concomitant]
     Route: 065

REACTIONS (9)
  - ABNORMAL BEHAVIOUR [None]
  - AGGRESSION [None]
  - CONVULSION [None]
  - DISORIENTATION [None]
  - DRUG DOSE OMISSION [None]
  - LOSS OF CONSCIOUSNESS [None]
  - SENSORY LOSS [None]
  - TARDIVE DYSKINESIA [None]
  - WEIGHT INCREASED [None]
